FAERS Safety Report 13182380 (Version 1)
Quarter: 2017Q1

REPORT INFORMATION
  Report Type: Spontaneous
  Country: PT (occurrence: PT)
  Receive Date: 20170203
  Receipt Date: 20170203
  Transmission Date: 20170428
  Serious: Yes (Other)
  Sender: FDA-Public Use
  Company Number: PT-TEVA-734630ISR

PATIENT
  Age: 62 Year
  Sex: Male

DRUGS (5)
  1. MYCOPHENOLATE MOFETIL. [Suspect]
     Active Substance: MYCOPHENOLATE MOFETIL
     Indication: RENAL TRANSPLANT
     Dosage: 2000 MILLIGRAM DAILY; 1000MG TWICE A DAY
     Route: 048
     Dates: start: 20140929
  2. CICLOSPORIN [Suspect]
     Active Substance: CYCLOSPORINE
     Indication: RENAL TRANSPLANT
     Dosage: 350 MILLIGRAM DAILY; 175 MG TWICE DAILY WITH TARGET LEVELS ACHIEVED
     Dates: start: 20140929
  3. PREDNISOLONE. [Concomitant]
     Active Substance: PREDNISOLONE
     Indication: RENAL TRANSPLANT
     Dates: start: 20140929
  4. BASILIXIMAB [Concomitant]
     Active Substance: BASILIXIMAB
     Indication: RENAL TRANSPLANT
     Dosage: FIRST AND FOURTH POST-TRANSPLANT DAYS
     Dates: start: 20140929
  5. METHYLPREDNISOLONE. [Concomitant]
     Active Substance: METHYLPREDNISOLONE
     Indication: RENAL TRANSPLANT
     Dosage: 500-250-125-SOMG ON 1-4 POST-TRANSPLANT DAYS, RESPECTIVELY
     Dates: start: 20140929

REACTIONS (3)
  - Polyomavirus-associated nephropathy [Recovered/Resolved]
  - Pancytopenia [Recovered/Resolved]
  - Bacterial pyelonephritis [Unknown]

NARRATIVE: CASE EVENT DATE: 2014
